FAERS Safety Report 9891492 (Version 5)
Quarter: 2015Q1

REPORT INFORMATION
  Report Type: Report from Study
  Country: JP (occurrence: JP)
  Receive Date: 20140212
  Receipt Date: 20150316
  Transmission Date: 20150721
  Serious: Yes (Death, Life-Threatening)
  Sender: FDA-Public Use
  Company Number: JP-SA-THYM-1004124

PATIENT
  Age: 14 Year
  Sex: Female
  Weight: 54 kg

DRUGS (45)
  1. FK 506 [Concomitant]
     Active Substance: TACROLIMUS
     Indication: PROPHYLAXIS AGAINST GRAFT VERSUS HOST DISEASE
  2. VICCLOX [Concomitant]
     Active Substance: ACYCLOVIR SODIUM
     Indication: INFECTION PROPHYLAXIS
     Dosage: UNK
     Dates: start: 20121206, end: 20130117
  3. MAGMITT [Concomitant]
     Active Substance: MAGNESIUM OXIDE
     Indication: CONSTIPATION PROPHYLAXIS
     Dosage: UNK
  4. THYMOGLOBULINE [Suspect]
     Active Substance: LAPINE T-LYMPHOCYTE IMMUNE GLOBULIN
     Indication: BONE MARROW CONDITIONING REGIMEN
     Route: 065
     Dates: start: 20121207, end: 20121210
  5. SOL-MELCORT [Concomitant]
     Active Substance: METHYLPREDNISOLONE SODIUM SUCCINATE
     Indication: INFUSION RELATED REACTION
     Dosage: UNK
     Dates: start: 20121208, end: 20121210
  6. OMEPRAL [Concomitant]
     Active Substance: OMEPRAZOLE
     Indication: PROPHYLAXIS
     Dosage: UNK
     Dates: start: 20121220, end: 20121228
  7. PREDONINE [Concomitant]
     Active Substance: PREDNISOLONE\PREDNISOLONE ACETATE\PREDNISOLONE SODIUM SUCCINATE
     Indication: PROPHYLAXIS
     Dosage: UNK
     Dates: start: 20121220, end: 20130107
  8. THYMOGLOBULINE [Suspect]
     Active Substance: LAPINE T-LYMPHOCYTE IMMUNE GLOBULIN
     Indication: BONE MARROW CONDITIONING REGIMEN
     Route: 065
     Dates: start: 20121207, end: 20121210
  9. UROMITEXAN [Concomitant]
     Active Substance: MESNA
     Indication: PROPHYLAXIS
     Dosage: UNK
     Dates: start: 20121207, end: 20121210
  10. SOLDEM 1 [Concomitant]
     Dosage: UNK
     Dates: start: 20121206, end: 20130208
  11. PENTAGIN [Concomitant]
     Active Substance: PENTAZOCINE HYDROCHLORIDE
     Indication: APLASTIC ANAEMIA
     Dosage: UNK
     Dates: start: 20121216, end: 20121216
  12. POLYMYXIN B SULFATE. [Concomitant]
     Active Substance: POLYMYXIN B SULFATE
     Indication: INFECTION PROPHYLAXIS
     Dosage: UNK
     Dates: end: 20121226
  13. GRAN [Concomitant]
     Active Substance: FILGRASTIM
     Indication: HAEMATOTOXICITY
     Dosage: UNK
     Dates: start: 20121220, end: 20121228
  14. PROGRAF [Concomitant]
     Active Substance: TACROLIMUS\TACROLIMUS ANHYDROUS
     Indication: PROPHYLAXIS AGAINST TRANSPLANT REJECTION
     Dosage: UNK
     Dates: start: 20121212, end: 20121215
  15. CEFMETAZON [Concomitant]
     Active Substance: CEFMETAZOLE SODIUM
     Indication: INFECTION PROPHYLAXIS
     Dosage: UNK
     Dates: start: 20121209, end: 20121211
  16. CEFEPIME [Concomitant]
     Active Substance: CEFEPIME\CEFEPIME HYDROCHLORIDE
     Indication: INFECTION PROPHYLAXIS
     Dosage: UNK
     Dates: start: 20121212, end: 20121213
  17. METHOTREXATE [Concomitant]
     Active Substance: METHOTREXATE
     Indication: APLASTIC ANAEMIA
     Dosage: UNK
     Dates: start: 20121214, end: 20121219
  18. HISHIPHAGEN-C [Concomitant]
     Indication: LIVER DISORDER
     Dosage: UNK
     Dates: start: 20121216, end: 20121217
  19. URSO [Concomitant]
     Active Substance: URSODIOL
     Indication: PROPHYLAXIS
     Dosage: UNK
     Dates: end: 20130117
  20. MARZULENE [Concomitant]
     Active Substance: SODIUM GUALENATE
     Indication: PROPHYLAXIS
     Dosage: UNK
     Dates: start: 20121216, end: 20121218
  21. ENDOXAN [Suspect]
     Active Substance: CYCLOPHOSPHAMIDE
     Indication: APLASTIC ANAEMIA
     Dosage: UNK
     Route: 065
     Dates: start: 20121207, end: 20121210
  22. SAXIZON [Concomitant]
     Active Substance: HYDROCORTISONE SODIUM SUCCINATE
     Indication: PROPHYLAXIS
     Dosage: UNK
     Dates: start: 20121213, end: 20121213
  23. URSO [Concomitant]
     Active Substance: URSODIOL
     Indication: PROPHYLAXIS
     Dosage: UNK
     Dates: end: 20130117
  24. BAKTAR [Concomitant]
     Active Substance: SULFAMETHOXAZOLE\TRIMETHOPRIM
     Indication: INFECTION PROPHYLAXIS
     Dosage: UNK
  25. FLUDARABINE PHOSPHATE. [Concomitant]
     Active Substance: FLUDARABINE PHOSPHATE
     Indication: APLASTIC ANAEMIA
     Dosage: UNK
     Dates: start: 20121207, end: 20121210
  26. KENKETSU VENILON [Concomitant]
     Indication: PROPHYLAXIS
     Dosage: UNK
     Dates: start: 20121212, end: 20121212
  27. HEPARIN SODIUM. [Concomitant]
     Active Substance: HEPARIN SODIUM
     Dosage: UNK
     Dates: start: 20121206, end: 20130208
  28. AMPICILLIN [Concomitant]
     Active Substance: AMPICILLIN
     Indication: INFECTION PROPHYLAXIS
     Dosage: UNK
     Dates: start: 20121211, end: 20121217
  29. HISHIPHAGEN-C [Concomitant]
     Indication: APLASTIC ANAEMIA
     Dosage: UNK
     Dates: start: 20121216, end: 20121217
  30. LASIX [Concomitant]
     Active Substance: FUROSEMIDE
     Dosage: UNK
     Dates: start: 20121215, end: 20121218
  31. FUNGUARD [Concomitant]
     Active Substance: MICAFUNGIN SODIUM
     Indication: INFECTION PROPHYLAXIS
     Dosage: UNK
     Dates: start: 20121220, end: 20121226
  32. METHOTREXATE [Concomitant]
     Active Substance: METHOTREXATE
     Indication: PROPHYLAXIS AGAINST GRAFT VERSUS HOST DISEASE
  33. GRANISETRON [Concomitant]
     Active Substance: GRANISETRON
     Indication: PROPHYLAXIS
     Dosage: UNK
     Dates: start: 20121207, end: 20121210
  34. DENOSINE [Concomitant]
     Active Substance: GANCICLOVIR
     Indication: INFECTION PROPHYLAXIS
     Dosage: UNK
     Dates: start: 20121206, end: 20130201
  35. KENKETSU VENILON [Concomitant]
     Indication: PROPHYLAXIS
     Dosage: UNK
     Dates: start: 20121212, end: 20121212
  36. MEYLON [Concomitant]
     Active Substance: SODIUM BICARBONATE
     Dosage: UNK
     Dates: start: 20121206
  37. GLUCOSE [Concomitant]
     Active Substance: DEXTROSE
     Dosage: UNK (5% SOLUTION)
     Dates: start: 20121212, end: 20121226
  38. BONZOL [Concomitant]
     Active Substance: LANSOPRAZOLE
     Indication: APLASTIC ANAEMIA
     Dosage: UNK
     Dates: start: 20130513, end: 20130520
  39. PENTAGIN [Concomitant]
     Active Substance: PENTAZOCINE HYDROCHLORIDE
     Indication: PROPHYLAXIS
     Dosage: UNK
     Dates: start: 20121216, end: 20121216
  40. OMEPRAL [Concomitant]
     Active Substance: OMEPRAZOLE
     Indication: APLASTIC ANAEMIA
     Dosage: UNK
     Dates: start: 20121220, end: 20121228
  41. CELLCEPT [Concomitant]
     Active Substance: MYCOPHENOLATE MOFETIL\MYCOPHENOLATE MOFETIL HYDROCHLORIDE
     Indication: PROPHYLAXIS
     Dosage: UNK
     Dates: start: 20121218, end: 20130310
  42. BACCIDAL [Concomitant]
     Active Substance: NORFLOXACIN
     Indication: APLASTIC ANAEMIA
     Dosage: UNK
     Dates: start: 20121221, end: 20121226
  43. FLUCONAZOLE. [Concomitant]
     Active Substance: FLUCONAZOLE
     Indication: INFECTION PROPHYLAXIS
     Dosage: UNK
     Dates: start: 20121213
  44. MARZULENE [Concomitant]
     Active Substance: SODIUM GUALENATE
     Indication: PROPHYLAXIS
     Dosage: UNK
     Dates: start: 20121216, end: 20121218
  45. PREDONINE [Concomitant]
     Active Substance: PREDNISOLONE\PREDNISOLONE ACETATE\PREDNISOLONE SODIUM SUCCINATE
     Indication: PROPHYLAXIS
     Dosage: UNK
     Dates: start: 20130108, end: 20130120

REACTIONS (4)
  - Cytomegalovirus viraemia [Recovered/Resolved]
  - Cardiac tamponade [Not Recovered/Not Resolved]
  - Infusion related reaction [Recovered/Resolved]
  - Immune thrombocytopenic purpura [Fatal]

NARRATIVE: CASE EVENT DATE: 20121207
